FAERS Safety Report 8272959-6 (Version None)
Quarter: 2012Q2

REPORT INFORMATION
  Report Type: 
  Country: None (occurrence: None)
  Receive Date: 20120406
  Receipt Date: 20120406
  Transmission Date: 20120825
  Serious: Yes (Disabling)
  Sender: FDA-Public Use
  Company Number: None

PATIENT
  Age: 60 Year
  Sex: Female
  Weight: 58.0604 kg

DRUGS (1)
  1. TAXOTERE [Suspect]
     Indication: BREAST CANCER
     Dosage: CHEMOTHERAPY EVERY 3 WEEKS 6 CYCLES

REACTIONS (1)
  - ALOPECIA [None]
